FAERS Safety Report 10366152 (Version 2)
Quarter: 2014Q3

REPORT INFORMATION
  Report Type: Spontaneous
  Country: US (occurrence: US)
  Receive Date: 20140806
  Receipt Date: 20140806
  Transmission Date: 20150326
  Serious: Yes (Hospitalization, Other)
  Sender: FDA-Public Use
  Company Number: US-009507513-2010SP041957

PATIENT
  Sex: Female
  Weight: 86.18 kg

DRUGS (1)
  1. NUVARING [Suspect]
     Active Substance: ETHINYL ESTRADIOL\ETONOGESTREL
     Indication: CONTRACEPTION
     Route: 067
     Dates: start: 2007, end: 200807

REACTIONS (11)
  - Pulmonary embolism [Unknown]
  - Deep vein thrombosis [Unknown]
  - Bronchitis [Unknown]
  - Cellulitis [Unknown]
  - Device expulsion [Unknown]
  - Pneumonia [Unknown]
  - Road traffic accident [Unknown]
  - Alcohol poisoning [Unknown]
  - Atelectasis [Unknown]
  - Anxiety [Unknown]
  - Pulmonary infarction [Unknown]

NARRATIVE: CASE EVENT DATE: 2007
